FAERS Safety Report 4568327-0 (Version None)
Quarter: 2005Q1

REPORT INFORMATION
  Report Type: 
  Country: None (occurrence: None)
  Receive Date: 20050202
  Receipt Date: 20031215
  Transmission Date: 20050727
  Serious: Yes (Other)
  Sender: FDA-Public Use
  Company Number: US-GLAXOSMITHKLINE-A0443144A

PATIENT
  Age: 62 Year
  Sex: Female

DRUGS (4)
  1. COMMIT [Suspect]
     Indication: SMOKING CESSATION THERAPY
     Route: 002
     Dates: start: 20031208, end: 20031215
  2. LIPITOR [Concomitant]
  3. FIBER [Concomitant]
  4. VITAMIN [Concomitant]

REACTIONS (17)
  - ASTHENIA [None]
  - BLOOD IRON DECREASED [None]
  - DIZZINESS [None]
  - DYSPEPSIA [None]
  - DYSPNOEA [None]
  - DYSSTASIA [None]
  - FAECES DISCOLOURED [None]
  - FATIGUE [None]
  - FEELING ABNORMAL [None]
  - HAEMORRHAGE [None]
  - NAUSEA [None]
  - RED BLOOD CELL COUNT DECREASED [None]
  - SLUGGISHNESS [None]
  - THROAT IRRITATION [None]
  - TREMOR [None]
  - UPPER GASTROINTESTINAL HAEMORRHAGE [None]
  - VOMITING [None]
